FAERS Safety Report 8587177-1 (Version None)
Quarter: 2012Q3

REPORT INFORMATION
  Report Type: 
  Country: None (occurrence: None)
  Receive Date: 20120810
  Receipt Date: 20120308
  Transmission Date: 20120928
  Serious: No
  Sender: FDA-Public Use
  Company Number: US-ASTRAZENECA-2009UW14648

PATIENT
  Age: 70 Year
  Sex: Female
  Weight: 68 kg

DRUGS (9)
  1. ALBUTEROL [Concomitant]
  2. LISINOPRIL [Concomitant]
  3. ARIMIDEX [Suspect]
     Indication: BREAST CANCER
     Route: 048
     Dates: start: 20090205, end: 20120228
  4. TAMOXIFEN CITRATE [Concomitant]
  5. METFORMIN HYDROCHLORIDE [Concomitant]
  6. SIMVASTATIN [Concomitant]
     Indication: BLOOD CHOLESTEROL
  7. ARIMIDEX [Suspect]
     Route: 048
     Dates: start: 20090201
  8. ARIMIDEX [Suspect]
     Dosage: GENERIC
     Route: 048
  9. PROMETH CODEINE COUGH SYRUP [Concomitant]

REACTIONS (27)
  - JOINT RANGE OF MOTION DECREASED [None]
  - LIGAMENT INJURY [None]
  - FOOT FRACTURE [None]
  - DYSPHONIA [None]
  - CARDIAC DISORDER [None]
  - FEELING ABNORMAL [None]
  - SPINAL OSTEOARTHRITIS [None]
  - MALAISE [None]
  - JOINT EFFUSION [None]
  - COUGH [None]
  - INSOMNIA [None]
  - RHINORRHOEA [None]
  - MUSCULOSKELETAL PAIN [None]
  - OSTEOARTHRITIS [None]
  - BONE DISORDER [None]
  - INFLAMMATION [None]
  - DIARRHOEA [None]
  - ARTHRITIS [None]
  - MENISCUS LESION [None]
  - GAIT DISTURBANCE [None]
  - PAIN [None]
  - JOINT INJURY [None]
  - SPONDYLOLISTHESIS [None]
  - SYNOVIAL CYST [None]
  - MUSCULOSKELETAL CHEST PAIN [None]
  - BLOOD CHOLESTEROL INCREASED [None]
  - ARTHRALGIA [None]
